FAERS Safety Report 19095794 (Version 1)
Quarter: 2021Q2

REPORT INFORMATION
  Report Type: Spontaneous
  Country: US (occurrence: US)
  Receive Date: 20210406
  Receipt Date: 20210406
  Transmission Date: 20210717
  Serious: Yes (Hospitalization, Other)
  Sender: FDA-Public Use
  Company Number: US-ROCHE-2801611

PATIENT
  Age: 78 Year
  Sex: Male
  Weight: 97.61 kg

DRUGS (3)
  1. ACTIVASE [Suspect]
     Active Substance: ALTEPLASE
     Indication: ISCHAEMIC STROKE
     Route: 042
     Dates: start: 20210320
  2. LIPITOR [Concomitant]
     Active Substance: ATORVASTATIN CALCIUM
  3. BABY ASPIRIN [Concomitant]
     Active Substance: ASPIRIN

REACTIONS (7)
  - Cerebral haemorrhage [Unknown]
  - Facial paralysis [Unknown]
  - Haematoma [Unknown]
  - Speech disorder [Unknown]
  - Movement disorder [Unknown]
  - Visual impairment [Unknown]
  - Disorganised speech [Unknown]

NARRATIVE: CASE EVENT DATE: 20210320
